FAERS Safety Report 8992644 (Version 1)
Quarter: 2013Q1

REPORT INFORMATION
  Report Type: Spontaneous
  Country: JP (occurrence: JP)
  Receive Date: 20130101
  Receipt Date: 20130101
  Transmission Date: 20140127
  Serious: Yes (Hospitalization, Other)
  Sender: FDA-Public Use
  Company Number: PHHY2012JP118453

PATIENT
  Age: 28 Year
  Sex: Male

DRUGS (4)
  1. RITALIN [Suspect]
     Indication: NARCOLEPSY
     Dosage: 150 MG DAILY (4 TABLETS DAILY)
     Route: 048
  2. RITALIN [Suspect]
     Dosage: 150 MG,
     Route: 045
  3. RITALIN [Suspect]
     Dosage: USED 8 TABLETS PER DAY, OR SOMETIMES UP TO ABOUT 15 TABLETS PER DAY
  4. AMOBAN [Concomitant]
     Route: 048

REACTIONS (10)
  - Intestinal obstruction [Unknown]
  - Amnesia [Unknown]
  - Memory impairment [Unknown]
  - Delusion [Unknown]
  - Aggression [Unknown]
  - Diarrhoea [Unknown]
  - Insomnia [Unknown]
  - Somnolence [Unknown]
  - Incorrect route of drug administration [Unknown]
  - Incorrect dose administered [Unknown]
